FAERS Safety Report 5199418-1 (Version None)
Quarter: 2006Q4

REPORT INFORMATION
  Report Type: 
  Country: None (occurrence: None)
  Receive Date: 20060929
  Receipt Date: 20060315
  Transmission Date: 20070319
  Serious: Yes (Other)
  Sender: FDA-Public Use
  Company Number: US-JNJFOC-20060304134

PATIENT
  Age: 34 Year
  Sex: Female
  Weight: 64.8644 kg

DRUGS (1)
  1. ORTHO TRI-CYCLEN LO (NORGESTIMATE/ETHINYL ESTRADIOL) TABLETS [Suspect]
     Indication: CONTRACEPTION
     Dosage: 1 DOSE (S), 1 IN 1 DAY ORAL
     Route: 048
     Dates: start: 20051201

REACTIONS (2)
  - DRUG EXPOSURE DURING PREGNANCY [None]
  - PREGNANCY ON ORAL CONTRACEPTIVE [None]
